FAERS Safety Report 4777766-4 (Version None)
Quarter: 2005Q3

REPORT INFORMATION
  Report Type: 
  Country: None (occurrence: None)
  Receive Date: 20050922
  Receipt Date: 20050908
  Transmission Date: 20060218
  Serious: Yes (Hospitalization)
  Sender: FDA-Public Use
  Company Number: CLOF-10015

PATIENT
  Age: 12 Year
  Sex: Male
  Weight: 38.4 kg

DRUGS (2)
  1. CLOLAR [Suspect]
     Indication: ACUTE LYMPHOCYTIC LEUKAEMIA
     Dosage: 52 MG/M2 QD IV
     Route: 042
     Dates: start: 20050513, end: 20050517
  2. NEURONTIN [Concomitant]

REACTIONS (16)
  - CAECITIS [None]
  - CHILLS [None]
  - DRUG TOLERANCE DECREASED [None]
  - FEELING ABNORMAL [None]
  - HEADACHE [None]
  - HERPES ZOSTER [None]
  - MALAISE [None]
  - NAUSEA [None]
  - NEUROPATHIC PAIN [None]
  - NEUROPATHY [None]
  - NEUTROPENIA [None]
  - OEDEMA [None]
  - PAIN IN EXTREMITY [None]
  - PALMAR-PLANTAR ERYTHRODYSAESTHESIA SYNDROME [None]
  - PYREXIA [None]
  - RASH [None]
